FAERS Safety Report 8956785 (Version 1)
Quarter: 2012Q4

REPORT INFORMATION
  Report Type: 
  Country: US (occurrence: US)
  Receive Date: 20121210
  Receipt Date: 20121210
  Transmission Date: 20130627
  Serious: Yes (Hospitalization, Other)
  Sender: FDA-Public Use
  Company Number: CHPA2012US024493

PATIENT
  Age: 70 Year
  Sex: Male

DRUGS (2)
  1. MAALOX [Suspect]
     Indication: GASTROOESOPHAGEAL REFLUX DISEASE
     Dosage: 2 tbsp as needed, once per month
     Route: 048
     Dates: start: 1994
  2. NEXIUM [Concomitant]
     Dosage: UNK
     Dates: start: 2005

REACTIONS (3)
  - Cholelithiasis [Not Recovered/Not Resolved]
  - Off label use [Unknown]
  - Therapeutic response unexpected [Unknown]
